FAERS Safety Report 6972516-5 (Version None)
Quarter: 2010Q3

REPORT INFORMATION
  Report Type: 
  Country: None (occurrence: None)
  Receive Date: 20100909
  Receipt Date: 20100906
  Transmission Date: 20110219
  Serious: Yes (Life-Threatening, Hospitalization, Other)
  Sender: FDA-Public Use
  Company Number: AU-ASTRAZENECA-2009SE22690

PATIENT
  Age: 0 Week
  Sex: Male
  Weight: 3.3 kg

DRUGS (4)
  1. SEROQUEL XR [Suspect]
     Indication: BIPOLAR DISORDER
     Dosage: INITIATED AT 12/14 WEEKS OF GESTATION
     Route: 064
  2. PROZAC [Concomitant]
     Indication: ANTIDEPRESSANT THERAPY
     Dosage: 60-20 MG /DAY, INITIATED BEFORE PREGNANCY AND STOPPED AT 38/40 WEEKS OF GESTATION
     Route: 064
  3. ELEVIT [Concomitant]
     Indication: PROPHYLAXIS OF NEURAL TUBE DEFECT
     Dosage: 1 TABLET/ DAY INITIATED BEFORE PREGNANCY AND STOPPED AT FIRST TRIMESTER
     Route: 064
  4. LEVOTHYROXINE SODIUM [Concomitant]
     Indication: HYPOTHYROIDISM
     Dosage: INITIATED BEFORE PREGNANCY
     Route: 064

REACTIONS (3)
  - HYPOTONIA [None]
  - RESPIRATORY DISTRESS [None]
  - UMBILICAL CORD AROUND NECK [None]
